FAERS Safety Report 23953084 (Version 1)
Quarter: 2024Q2

REPORT INFORMATION
  Report Type: Spontaneous
  Country: US (occurrence: US)
  Receive Date: 20240608
  Receipt Date: 20240608
  Transmission Date: 20240716
  Serious: Yes (Other)
  Sender: FDA-Public Use
  Company Number: US-ABBVIE-5786243

PATIENT
  Sex: Female

DRUGS (1)
  1. REFRESH PLUS [Suspect]
     Active Substance: CARBOXYMETHYLCELLULOSE SODIUM
     Indication: Eye irritation
     Dosage: PF?2 DROPS IN EACH EYE IN THE MORNING THEN ONCE AGAIN IN THE EVENING
     Route: 047

REACTIONS (2)
  - Surgery [Unknown]
  - Unevaluable event [Unknown]
